FAERS Safety Report 19980418 (Version 2)
Quarter: 2021Q4

REPORT INFORMATION
  Report Type: Spontaneous
  Country: IQ (occurrence: IQ)
  Receive Date: 20211021
  Receipt Date: 20211105
  Transmission Date: 20220303
  Serious: Yes (Death, Other)
  Sender: FDA-Public Use
  Company Number: IQ-SA-SAC20210930000100

PATIENT
  Sex: Female
  Weight: 8.6 kg

DRUGS (1)
  1. MYOZYME [Suspect]
     Active Substance: ALGLUCOSIDASE ALFA
     Indication: Glycogen storage disease type II
     Dosage: 50 MG (4 VIALS), QOW
     Route: 065
     Dates: end: 20210926

REACTIONS (1)
  - Respiratory failure [Fatal]
